FAERS Safety Report 19361510 (Version 1)
Quarter: 2021Q2

REPORT INFORMATION
  Report Type: Spontaneous
  Country: JP (occurrence: JP)
  Receive Date: 20210601
  Receipt Date: 20210601
  Transmission Date: 20210717
  Serious: Yes (Hospitalization, Other)
  Sender: FDA-Public Use
  Company Number: JP-BRISTOL-MYERS SQUIBB COMPANY-BMS-2021-052057

PATIENT
  Age: 82 Year
  Sex: Male

DRUGS (1)
  1. HYDREA [Suspect]
     Active Substance: HYDROXYUREA
     Indication: POLYCYTHAEMIA VERA
     Dosage: UNK
     Route: 048

REACTIONS (7)
  - Splenomegaly [Unknown]
  - Pyrexia [Unknown]
  - Night sweats [Unknown]
  - Lymphadenopathy [Unknown]
  - Blood lactate dehydrogenase increased [Unknown]
  - Pancytopenia [Unknown]
  - Liver disorder [Unknown]
